FAERS Safety Report 11199729 (Version 1)
Quarter: 2015Q2

REPORT INFORMATION
  Report Type: Spontaneous
  Country: US (occurrence: US)
  Receive Date: 20150618
  Receipt Date: 20150618
  Transmission Date: 20150821
  Serious: Yes (Other)
  Sender: FDA-Public Use
  Company Number: US-PFIZER INC-2015200545

PATIENT
  Age: 58 Year
  Sex: Female

DRUGS (1)
  1. AROMASIN [Suspect]
     Active Substance: EXEMESTANE
     Indication: BREAST CANCER METASTATIC
     Dosage: UNK

REACTIONS (6)
  - Osteonecrosis [Unknown]
  - Osteopenia [Unknown]
  - Blood alkaline phosphatase increased [Unknown]
  - Arthritis [Unknown]
  - Weight decreased [Unknown]
  - Scleroderma [Unknown]
